FAERS Safety Report 13513654 (Version 1)
Quarter: 2017Q2

REPORT INFORMATION
  Report Type: Spontaneous
  Country: BE (occurrence: BE)
  Receive Date: 20170504
  Receipt Date: 20170504
  Transmission Date: 20170830
  Serious: Yes (Other)
  Sender: FDA-Public Use
  Company Number: BE-ACCORD-051145

PATIENT
  Age: 10 Year
  Sex: Male

DRUGS (4)
  1. CYCLOPHOSPHAMIDE/CYCLOPHOSPHAMIDE MONOHYDRATE [Suspect]
     Active Substance: CYCLOPHOSPHAMIDE
     Indication: PINEALOBLASTOMA
  2. CISPLATIN. [Suspect]
     Active Substance: CISPLATIN
     Indication: PINEALOBLASTOMA
  3. CISPLATIN. [Suspect]
     Active Substance: CISPLATIN
     Indication: METASTASES TO SPINE
  4. VINCRISTINE [Suspect]
     Active Substance: VINCRISTINE
     Indication: PINEALOBLASTOMA
     Dosage: TWO 1.5 MG/M2 DOSES/CYCLE

REACTIONS (2)
  - Bone marrow failure [Unknown]
  - Off label use [Unknown]
